FAERS Safety Report 21171376 (Version 2)
Quarter: 2022Q3

REPORT INFORMATION
  Report Type: Spontaneous
  Country: GB (occurrence: GB)
  Receive Date: 20220804
  Receipt Date: 20220902
  Transmission Date: 20221027
  Serious: Yes (Other)
  Sender: FDA-Public Use
  Company Number: GB-VERTEX PHARMACEUTICALS-2022-011338

PATIENT
  Age: 30 Year
  Sex: Female
  Weight: 47 kg

DRUGS (10)
  1. ELEXACAFTOR\IVACAFTOR\TEZACAFTOR [Suspect]
     Active Substance: ELEXACAFTOR\IVACAFTOR\TEZACAFTOR
     Indication: Cystic fibrosis
     Dosage: 2 TABLETS; QD
     Route: 048
     Dates: start: 20200930, end: 202012
  2. ELEXACAFTOR\IVACAFTOR\TEZACAFTOR [Suspect]
     Active Substance: ELEXACAFTOR\IVACAFTOR\TEZACAFTOR
     Dosage: UNK FREQ.
     Route: 048
     Dates: start: 202012
  3. KALYDECO [Suspect]
     Active Substance: IVACAFTOR
     Indication: Cystic fibrosis
     Dosage: 150 MG PM
     Route: 048
     Dates: start: 20200930, end: 202012
  4. KALYDECO [Suspect]
     Active Substance: IVACAFTOR
     Dosage: UNK FRE
     Route: 048
     Dates: start: 202012
  5. CREON [Concomitant]
     Active Substance: PANCRELIPASE AMYLASE\PANCRELIPASE LIPASE\PANCRELIPASE PROTEASE
     Indication: Cystic fibrosis
     Dosage: WITH FOOD PO
     Route: 048
     Dates: start: 19900424
  6. DEOXYRIBONUCLEASE, NATURAL [Concomitant]
     Indication: Cystic fibrosis
     Dosage: UNK, QD
     Route: 055
  7. BECLOMETHASONE\FORMOTEROL [Concomitant]
     Active Substance: BECLOMETHASONE\FORMOTEROL
     Indication: Cystic fibrosis
     Dosage: 2 PUFFS
  8. OMEPRAZOLE [Concomitant]
     Active Substance: OMEPRAZOLE
     Indication: Cystic fibrosis
     Dosage: UNK, QD
  9. DEKA [Concomitant]
     Indication: Cystic fibrosis
     Dosage: 1 TABLET
  10. FOLIC ACID [Concomitant]
     Active Substance: FOLIC ACID
     Indication: Pregnancy
     Dosage: UNK, QD
     Dates: start: 202103

REACTIONS (2)
  - Abortion spontaneous [Unknown]
  - Exposure during pregnancy [Unknown]

NARRATIVE: CASE EVENT DATE: 20201209
